FAERS Safety Report 6058635-9 (Version None)
Quarter: 2009Q1

REPORT INFORMATION
  Report Type: 
  Country: None (occurrence: None)
  Receive Date: 20090130
  Receipt Date: 20090119
  Transmission Date: 20090719
  Serious: Yes (Other)
  Sender: FDA-Public Use
  Company Number: BR-PFIZER INC-2009159816

PATIENT

DRUGS (5)
  1. VIAGRA [Suspect]
     Indication: ERECTILE DYSFUNCTION
     Dosage: UNK
     Route: 048
     Dates: start: 20070101
  2. GLUCOBAY [Concomitant]
     Dosage: UNK
  3. VALSARTAN [Concomitant]
     Dosage: UNK
  4. NORVASC [Concomitant]
     Dosage: UNK
  5. GLUCOFORMIN [Concomitant]
     Dosage: UNK

REACTIONS (1)
  - CARDIAC OPERATION [None]
